FAERS Safety Report 9236931 (Version 2)
Quarter: 2013Q2

REPORT INFORMATION
  Report Type: Spontaneous
  Country: SE (occurrence: SE)
  Receive Date: 20130417
  Receipt Date: 20130531
  Transmission Date: 20140414
  Serious: Yes (Other)
  Sender: FDA-Public Use
  Company Number: PHHY2013SE035861

PATIENT
  Sex: Female

DRUGS (2)
  1. RITALIN [Suspect]
     Indication: NARCOLEPSY
     Dosage: 3 DF, DAILY
     Route: 048
  2. RITALIN [Suspect]
     Dosage: 2 DF, PRN
     Route: 048

REACTIONS (1)
  - Suicidal ideation [Recovered/Resolved]
